FAERS Safety Report 7025261-4 (Version None)
Quarter: 2010Q4

REPORT INFORMATION
  Report Type: 
  Country: None (occurrence: None)
  Receive Date: 20101001
  Receipt Date: 20100923
  Transmission Date: 20110411
  Serious: Yes (Death, Life-Threatening, Other)
  Sender: FDA-Public Use
  Company Number: US-MPIJNJ-2010-04871

PATIENT
  Sex: Female
  Weight: 105.1 kg

DRUGS (4)
  1. VELCADE [Suspect]
     Indication: MYELOID LEUKAEMIA
  2. MITOXANTRONE [Suspect]
     Indication: MYELOID LEUKAEMIA
  3. ETOPOSIDE [Suspect]
     Indication: MYELOID LEUKAEMIA
  4. CYTARABINE [Suspect]
     Indication: MYELOID LEUKAEMIA

REACTIONS (3)
  - ATRIAL FIBRILLATION [None]
  - RENAL IMPAIRMENT [None]
  - SEPTIC SHOCK [None]
